FAERS Safety Report 6954694-7 (Version None)
Quarter: 2010Q3

REPORT INFORMATION
  Report Type: 
  Country: None (occurrence: None)
  Receive Date: 20100829
  Receipt Date: 20100820
  Transmission Date: 20110219
  Serious: No
  Sender: FDA-Public Use
  Company Number: US-US-EMD SERONO, INC.-7015071

PATIENT
  Sex: Female

DRUGS (5)
  1. REBIF [Suspect]
     Indication: MULTIPLE SCLEROSIS
     Route: 058
     Dates: start: 20021016
  2. TIZANIDINE HCL [Concomitant]
  3. BACLOFEN [Concomitant]
  4. TAPAZOLE [Concomitant]
  5. NAPROXEN [Concomitant]
     Indication: PREMEDICATION

REACTIONS (5)
  - BASEDOW'S DISEASE [None]
  - INJECTION SITE DISCOLOURATION [None]
  - INJECTION SITE ERYTHEMA [None]
  - INJECTION SITE INDURATION [None]
  - INJECTION SITE MASS [None]
